FAERS Safety Report 6231420-0 (Version None)
Quarter: 2009Q2

REPORT INFORMATION
  Report Type: 
  Country: None (occurrence: None)
  Receive Date: 20090611
  Receipt Date: 20090604
  Transmission Date: 20091009
  Serious: Yes (Hospitalization)
  Sender: FDA-Public Use
  Company Number: 09GB001771

PATIENT
  Age: 24 Year
  Sex: Male

DRUGS (1)
  1. NAPROXEN SODIUM 12063/0054 [Suspect]
     Indication: BACK PAIN
     Dosage: 250 MG, BID, ORAL
     Route: 048
     Dates: start: 20090519, end: 20090522

REACTIONS (1)
  - DUODENAL ULCER PERFORATION [None]
